FAERS Safety Report 5317800-6 (Version None)
Quarter: 2007Q2

REPORT INFORMATION
  Report Type: 
  Country: None (occurrence: None)
  Receive Date: 20070502
  Receipt Date: 20070502
  Transmission Date: 20071010
  Serious: Yes (Hospitalization)
  Sender: FDA-Public Use
  Company Number: None

PATIENT
  Age: 65 Year
  Sex: Male
  Weight: 119 kg

DRUGS (4)
  1. VANCOMYCIN [Suspect]
     Indication: ANTIBIOTIC PROPHYLAXIS
     Dosage: 1 GRAM Q12H IV DRIP
     Route: 041
     Dates: start: 20070419, end: 20070429
  2. VANCOMYCIN [Suspect]
     Indication: LEUKOCYTOSIS
     Dosage: 1 GRAM Q12H IV DRIP
     Route: 041
     Dates: start: 20070419, end: 20070429
  3. VANCOMYCIN [Suspect]
     Indication: PYREXIA
     Dosage: 1 GRAM Q12H IV DRIP
     Route: 041
     Dates: start: 20070419, end: 20070429
  4. CEFIXIME [Suspect]
     Dosage: 2 GRAMS Q12H IV DRIP
     Route: 041
     Dates: start: 20070419, end: 20070424

REACTIONS (4)
  - CONDITION AGGRAVATED [None]
  - DECUBITUS ULCER [None]
  - DRUG HYPERSENSITIVITY [None]
  - TOXIC EPIDERMAL NECROLYSIS [None]
